FAERS Safety Report 5106105-4 (Version None)
Quarter: 2006Q3

REPORT INFORMATION
  Report Type: 
  Country: None (occurrence: None)
  Receive Date: 20060912
  Receipt Date: 20060829
  Transmission Date: 20061208
  Serious: Yes (Other)
  Sender: FDA-Public Use
  Company Number: 2006PV019304

PATIENT
  Age: 47 Year
  Sex: Male

DRUGS (2)
  1. SYMLIN [Suspect]
     Indication: DIABETES MELLITUS NON-INSULIN-DEPENDENT
     Dosage: 60 MCG;TID;SC
     Route: 058
     Dates: start: 20060807
  2. NPH INSULIN [Concomitant]

REACTIONS (3)
  - BLINDNESS [None]
  - HYPERGLYCAEMIA [None]
  - VITREOUS HAEMORRHAGE [None]
